FAERS Safety Report 12933541 (Version 9)
Quarter: 2018Q2

REPORT INFORMATION
  Report Type: Report from Study
  Country: US (occurrence: US)
  Receive Date: 20161111
  Receipt Date: 20180530
  Transmission Date: 20180711
  Serious: Yes (Hospitalization)
  Sender: FDA-Public Use
  Company Number: US-ACTELION-A-NJ2016-145393

PATIENT
  Age: 46 Year
  Sex: Female
  Weight: 51.25 kg

DRUGS (10)
  1. LACTOBACILLUS [Concomitant]
     Active Substance: LACTOBACILLUS ACIDOPHILUS
     Dosage: UNK
     Dates: start: 2014
  2. METHYLPREDNISOLONE. [Concomitant]
     Active Substance: METHYLPREDNISOLONE
     Dosage: 125 MG, TID
     Dates: end: 20170829
  3. ZITHROMYCIN [Interacting]
     Active Substance: AZITHROMYCIN ANHYDROUS
     Indication: PRODUCT USED FOR UNKNOWN INDICATION
     Route: 065
  4. HYDROCHLOROTHIAZIDE. [Concomitant]
     Active Substance: HYDROCHLOROTHIAZIDE
     Dosage: UNK
     Dates: start: 2014
  5. REVATIO [Concomitant]
     Active Substance: SILDENAFIL CITRATE
     Dosage: UNK
     Dates: start: 200507
  6. LASIX [Concomitant]
     Active Substance: FUROSEMIDE
  7. UPTRAVI [Suspect]
     Active Substance: SELEXIPAG
     Dosage: UNK
     Route: 048
     Dates: start: 20160606
  8. CEFTRIAXONE. [Concomitant]
     Active Substance: CEFTRIAXONE
     Dosage: 1 G, SINGLE
     Route: 042
     Dates: start: 20170829, end: 20170829
  9. UPTRAVI [Suspect]
     Active Substance: SELEXIPAG
     Indication: PULMONARY HYPERTENSION
     Dosage: 600 MCG, BID
     Route: 048
     Dates: start: 20160608
  10. OPSUMIT [Concomitant]
     Active Substance: MACITENTAN
     Dosage: UNK
     Dates: start: 201410

REACTIONS (16)
  - Bronchial secretion retention [Unknown]
  - Palpitations [Unknown]
  - Pneumonia bacterial [Unknown]
  - Pneumonia [Unknown]
  - Sepsis [Unknown]
  - Hypoxia [Recovered/Resolved]
  - Bronchial hyperreactivity [Unknown]
  - Pruritus [Unknown]
  - Acute respiratory failure [Recovered/Resolved]
  - Right ventricular failure [Unknown]
  - Drug hypersensitivity [Unknown]
  - Pain [Unknown]
  - Upper respiratory tract infection [Unknown]
  - Pneumonia viral [Unknown]
  - Fluid overload [Unknown]
  - Folliculitis [Unknown]

NARRATIVE: CASE EVENT DATE: 201706
